FAERS Safety Report 5926183-X (Version None)
Quarter: 2008Q4

REPORT INFORMATION
  Report Type: 
  Country: None (occurrence: None)
  Receive Date: 20081017
  Receipt Date: 20081007
  Transmission Date: 20090506
  Serious: Yes (Other)
  Sender: FDA-Public Use
  Company Number: 2008AP002432

PATIENT
  Age: 40 Year
  Sex: Male

DRUGS (1)
  1. FLUTICASONE PROPIONATE [Suspect]
     Indication: RHINITIS
     Dosage: 2 SPR; QD; NAS
     Route: 045
     Dates: start: 20080710, end: 20080918

REACTIONS (3)
  - BLEPHARITIS [None]
  - RETINITIS [None]
  - SCLERITIS [None]
